FAERS Safety Report 9592658 (Version 2)
Quarter: 2013Q4

REPORT INFORMATION
  Report Type: Spontaneous
  Country: US (occurrence: US)
  Receive Date: 20131004
  Receipt Date: 20131004
  Transmission Date: 20140711
  Serious: No
  Sender: FDA-Public Use
  Company Number: US-BAXTER-2013BAX005162

PATIENT
  Sex: Female

DRUGS (4)
  1. DIANEAL LOW CALCIUM [Suspect]
     Indication: PERITONEAL DIALYSIS
     Route: 033
     Dates: start: 20130201
  2. DIANEAL LOW CALCIUM [Suspect]
     Dosage: 2 LITERS DAILY
     Route: 033
     Dates: start: 20130201
  3. DIANEAL LOW CALCIUM [Suspect]
     Indication: PERITONEAL DIALYSIS
     Route: 033
     Dates: start: 20130201
  4. DIANEAL LOW CALCIUM [Suspect]
     Dosage: 2 LITERS DAILY
     Route: 033
     Dates: start: 20130201

REACTIONS (1)
  - Discomfort [Unknown]
